FAERS Safety Report 4436700-7 (Version None)
Quarter: 2004Q3

REPORT INFORMATION
  Report Type: 
  Country: None (occurrence: None)
  Receive Date: 20040827
  Receipt Date: 20040827
  Transmission Date: 20050211
  Serious: Yes (Hospitalization)
  Sender: FDA-Public Use
  Company Number: None

PATIENT
  Age: 55 Year
  Sex: Male
  Weight: 100.6 kg

DRUGS (1)
  1. ADENOSINE [Suspect]
     Indication: CHEST PAIN
     Dosage: 83.2 MG IV INFUSION
     Route: 042

REACTIONS (7)
  - CHILLS [None]
  - DYSPNOEA [None]
  - DYSURIA [None]
  - FEELING COLD [None]
  - FLUSHING [None]
  - NAUSEA [None]
  - PRODUCTIVE COUGH [None]
